FAERS Safety Report 12543175 (Version 1)
Quarter: 2016Q3

REPORT INFORMATION
  Report Type: Spontaneous
  Country: US (occurrence: US)
  Receive Date: 20160711
  Receipt Date: 20160711
  Transmission Date: 20161109
  Serious: Yes (Hospitalization, Other)
  Sender: FDA-Public Use
  Company Number: US-SCIEGEN PHARMACEUTICALS INC-2016SCILIT00274

PATIENT
  Age: 81 Year
  Sex: Female

DRUGS (2)
  1. HYDROCHLOROTHIAZIDE TABLETS [Suspect]
     Active Substance: HYDROCHLOROTHIAZIDE
     Indication: PRODUCT USED FOR UNKNOWN INDICATION
     Dosage: UNK
     Route: 065
  2. ASPIRIN. [Concomitant]
     Active Substance: ASPIRIN
     Indication: PRODUCT USED FOR UNKNOWN INDICATION
     Dosage: 81 MG, UNK
     Route: 065

REACTIONS (7)
  - Metabolic acidosis [Unknown]
  - Ischaemic stroke [Unknown]
  - Hyperkalaemia [Unknown]
  - Dehydration [Unknown]
  - Confusional state [Unknown]
  - Decreased appetite [Unknown]
  - Acute kidney injury [Unknown]
